FAERS Safety Report 6036395-5 (Version None)
Quarter: 2009Q1

REPORT INFORMATION
  Report Type: 
  Country: None (occurrence: None)
  Receive Date: 20090112
  Receipt Date: 20081230
  Transmission Date: 20090719
  Serious: Yes (Hospitalization, Other)
  Sender: FDA-Public Use
  Company Number: 2009AL000004

PATIENT
  Age: 64 Year
  Sex: Female

DRUGS (5)
  1. LOVASTATIN [Suspect]
     Indication: HYPERCHOLESTEROLAEMIA
     Dosage: 20 MG; QD; PO
     Route: 048
     Dates: start: 20061009
  2. TOPROL-XL [Concomitant]
  3. CIPROFLOXACIN HCL [Concomitant]
  4. BENICAR [Concomitant]
  5. VITAPLEX [Concomitant]

REACTIONS (23)
  - AMMONIA INCREASED [None]
  - ANTINUCLEAR ANTIBODY POSITIVE [None]
  - AZOTAEMIA [None]
  - BACTERAEMIA [None]
  - CONTUSION [None]
  - DEHYDRATION [None]
  - FAECAL INCONTINENCE [None]
  - FOOD POISONING [None]
  - HEPATIC CIRRHOSIS [None]
  - HEPATIC ENCEPHALOPATHY [None]
  - HEPATIC FAILURE [None]
  - HEPATIC NECROSIS [None]
  - HEPATITIS [None]
  - HEPATOCELLULAR INJURY [None]
  - HISTONE ANTIBODY POSITIVE [None]
  - LIVER TRANSPLANT [None]
  - LUNG INFILTRATION [None]
  - PALLOR [None]
  - SEPSIS [None]
  - SOMNOLENCE [None]
  - SUBENDOCARDIAL ISCHAEMIA [None]
  - URINARY INCONTINENCE [None]
  - VENTRICULAR TACHYCARDIA [None]
